FAERS Safety Report 25082411 (Version 2)
Quarter: 2025Q2

REPORT INFORMATION
  Report Type: Report from Study
  Country: US (occurrence: US)
  Receive Date: 20250317
  Receipt Date: 20250403
  Transmission Date: 20250716
  Serious: Yes (Other)
  Sender: ABBVIE
  Company Number: US-ABBVIE-6171121

PATIENT
  Age: 59 Year
  Sex: Female

DRUGS (2)
  1. HUMIRA [Suspect]
     Active Substance: ADALIMUMAB
     Indication: Product used for unknown indication
     Route: 058
  2. DUPIXENT [Suspect]
     Active Substance: DUPILUMAB
     Indication: Product used for unknown indication
     Route: 065

REACTIONS (20)
  - Haemorrhagic stroke [Unknown]
  - Limb discomfort [Unknown]
  - Eructation [Not Recovered/Not Resolved]
  - Diarrhoea [Unknown]
  - Flatulence [Unknown]
  - Immunodeficiency [Unknown]
  - Systemic lupus erythematosus [Unknown]
  - Unevaluable event [Unknown]
  - Diabetes mellitus [Unknown]
  - Vitamin B12 decreased [Unknown]
  - Vitamin D decreased [Unknown]
  - Anaemia [Unknown]
  - Arthralgia [Unknown]
  - Pain in extremity [Unknown]
  - Skin exfoliation [Unknown]
  - Fatigue [Not Recovered/Not Resolved]
  - Neuropathy peripheral [Unknown]
  - Dysphagia [Recovered/Resolved]
  - Respiratory disorder [Recovered/Resolved]
  - Eructation [Not Recovered/Not Resolved]
